FAERS Safety Report 5152905-4 (Version None)
Quarter: 2006Q4

REPORT INFORMATION
  Report Type: 
  Country: None (occurrence: None)
  Receive Date: 20061113
  Receipt Date: 20061113
  Transmission Date: 20070319
  Serious: No
  Sender: FDA-Public Use
  Company Number: None

PATIENT
  Age: 74 Year
  Sex: Male
  Weight: 127.0072 kg

DRUGS (3)
  1. CYMBALTA [Suspect]
     Indication: SCIATICA
     Dosage: 60MG DAILY
     Dates: start: 20060401
  2. WARFARIN SODIUM [Suspect]
     Indication: MITRAL VALVE REPLACEMENT
     Dosage: VARIE
  3. LOVENOX (ENOXAPARIN 80MG TWICE/DAY) [Concomitant]

REACTIONS (5)
  - DRUG INTERACTION [None]
  - INJECTION SITE BRUISING [None]
  - INTERNATIONAL NORMALISED RATIO INCREASED [None]
  - SKIN HAEMORRHAGE [None]
  - VESSEL PUNCTURE SITE BRUISE [None]
